FAERS Safety Report 6630158-5 (Version None)
Quarter: 2010Q1

REPORT INFORMATION
  Report Type: 
  Country: None (occurrence: None)
  Receive Date: 20100310
  Receipt Date: 20100310
  Transmission Date: 20100710
  Serious: Yes (Hospitalization, Other)
  Sender: FDA-Public Use
  Company Number: None

PATIENT
  Sex: Female
  Weight: 44.5 kg

DRUGS (7)
  1. LEUCOVORIN CALCIUM [Suspect]
     Indication: ADENOCARCINOMA
     Dosage: 558 MG IV
     Route: 042
     Dates: start: 20100217, end: 20100217
  2. ELOXATIN [Suspect]
     Indication: ADENOCARCINOMA
     Dosage: 65 MG IV
     Route: 042
     Dates: start: 20100217, end: 20100217
  3. ATIVAN [Concomitant]
  4. COLACE [Concomitant]
  5. COMPAZINE [Concomitant]
  6. DILAUDID [Concomitant]
  7. SENNA [Concomitant]

REACTIONS (8)
  - ABDOMINAL ADHESIONS [None]
  - ABDOMINAL PAIN [None]
  - CONSTIPATION [None]
  - DEHYDRATION [None]
  - FAECAL VOMITING [None]
  - NAUSEA [None]
  - NEUTROPENIA [None]
  - SMALL INTESTINAL OBSTRUCTION [None]
